FAERS Safety Report 8176974-2 (Version None)
Quarter: 2012Q1

REPORT INFORMATION
  Report Type: 
  Country: None (occurrence: None)
  Receive Date: 20120126
  Receipt Date: 20111111
  Transmission Date: 20120608
  Serious: Yes (Other)
  Sender: FDA-Public Use
  Company Number: 2011SCPR003416

PATIENT
  Sex: Female

DRUGS (2)
  1. BIOTENE /00203502/ (GLUCOSE OXIDASE) [Concomitant]
  2. FENTANYL CITRATE [Suspect]
     Indication: PRODUCT USED FOR UNKNOWN INDICATION
     Dosage: ORAL TRANSMUCOSAL, ORAL
     Route: 048

REACTIONS (2)
  - DENTAL CARIES [None]
  - TOOTH LOSS [None]
